FAERS Safety Report 4736455-2 (Version None)
Quarter: 2005Q3

REPORT INFORMATION
  Report Type: 
  Country: None (occurrence: None)
  Receive Date: 20050802
  Receipt Date: 20050718
  Transmission Date: 20060218
  Serious: Yes (Hospitalization)
  Sender: FDA-Public Use
  Company Number: 11868

PATIENT
  Sex: Female

DRUGS (2)
  1. CARBOPLATIN [Suspect]
     Indication: OVARIAN CANCER
     Dosage: 6 AUC PER_CYCLE
     Route: 042
  2. PACLITAXEL [Suspect]
     Indication: OVARIAN CANCER
     Dosage: 135 MG/M2 PER_CYCLE
     Route: 042

REACTIONS (1)
  - ANGINA PECTORIS [None]
